FAERS Safety Report 7545766-7 (Version None)
Quarter: 2011Q2

REPORT INFORMATION
  Report Type: 
  Country: None (occurrence: None)
  Receive Date: 20110614
  Receipt Date: 20100504
  Transmission Date: 20111010
  Serious: Yes (Other)
  Sender: FDA-Public Use
  Company Number: US-JNJFOC-20110603318

PATIENT
  Age: 3 Year
  Sex: Male
  Weight: 14.97 kg

DRUGS (3)
  1. CHILDREN'S BENADRYL ALLERGY [Suspect]
     Indication: SNEEZING
     Dosage: ONE TEASPOONFUL
     Route: 048
  2. CHILDREN'S BENADRYL ALLERGY [Suspect]
     Indication: NASAL DISCOMFORT
     Dosage: ONE TEASPOONFUL
     Route: 048
  3. CHILDREN'S BENADRYL ALLERGY [Suspect]
     Indication: RHINORRHOEA
     Dosage: ONE TEASPOONFUL
     Route: 048

REACTIONS (3)
  - DYSPNOEA [None]
  - ASTHMA [None]
  - PRODUCT QUALITY ISSUE [None]
